FAERS Safety Report 24592679 (Version 1)
Quarter: 2024Q4

REPORT INFORMATION
  Report Type: Spontaneous
  Country: US (occurrence: US)
  Receive Date: 20241108
  Receipt Date: 20241108
  Transmission Date: 20250115
  Serious: Yes (Hospitalization, Other)
  Sender: HIKMA
  Company Number: US-HIKMA PHARMACEUTICALS USA INC.-US-H14001-24-10171

PATIENT
  Sex: Male

DRUGS (3)
  1. MORPHINE [Suspect]
     Active Substance: MORPHINE
     Indication: Product used for unknown indication
     Dosage: UNK
     Route: 065
  2. ALBUTEROL SULFATE [Concomitant]
     Active Substance: ALBUTEROL SULFATE
     Indication: Asthma
     Dosage: UNK
     Route: 065
  3. TYLENOL [Concomitant]
     Active Substance: ACETAMINOPHEN
     Indication: Product used for unknown indication
     Dosage: UNK
     Route: 065

REACTIONS (13)
  - Epilepsy [Unknown]
  - Seizure [Unknown]
  - Speech disorder [Unknown]
  - Feeding tube user [Unknown]
  - Feeling abnormal [Unknown]
  - Dyspnoea [Unknown]
  - Near death experience [Unknown]
  - Hyporesponsive to stimuli [Unknown]
  - Bedridden [Unknown]
  - Obstructive airways disorder [Unknown]
  - Dysphagia [Unknown]
  - Hypophagia [Unknown]
  - Product use issue [Unknown]
